FAERS Safety Report 8824797 (Version 1)
Quarter: 2012Q4

REPORT INFORMATION
  Report Type: Report from Study
  Country: US (occurrence: US)
  Receive Date: 20121004
  Receipt Date: 20121004
  Transmission Date: 20130627
  Serious: Yes (Death)
  Sender: FDA-Public Use
  Company Number: US-ROCHE-1016823

PATIENT
  Age: 78 None
  Sex: Male
  Weight: 70.82 kg

DRUGS (3)
  1. XELODA [Suspect]
     Indication: METASTATIC GASTRIC CANCER
     Route: 048
  2. XELODA [Suspect]
     Route: 048
     Dates: start: 20111011, end: 20120220
  3. OMEPRAZOLE [Concomitant]
     Route: 065

REACTIONS (5)
  - Death [Fatal]
  - Skin ulcer [Unknown]
  - Blister [Unknown]
  - Onychomadesis [Recovering/Resolving]
  - Blister [Recovered/Resolved]
